FAERS Safety Report 25967212 (Version 1)
Quarter: 2025Q4

REPORT INFORMATION
  Report Type: Spontaneous
  Country: US (occurrence: US)
  Receive Date: 20251028
  Receipt Date: 20251028
  Transmission Date: 20260118
  Serious: Yes (Death)
  Sender: CHATTEM
  Company Number: US-OPELLA-2025OHG030659

PATIENT

DRUGS (1)
  1. LIDOCAINE [Suspect]
     Active Substance: LIDOCAINE
     Indication: Thermal burn
     Route: 061

REACTIONS (2)
  - Adverse event [Fatal]
  - Accidental overdose [Fatal]
